APPROVED DRUG PRODUCT: TECHNETIUM TC99M MERTIATIDE KIT
Active Ingredient: TECHNETIUM TC-99M MERTIATIDE KIT
Strength: N/A
Dosage Form/Route: INJECTABLE;INJECTION
Application: A206489 | Product #001 | TE Code: AP
Applicant: MEDI-RADIOPHARMA LTD
Approved: Feb 6, 2020 | RLD: No | RS: No | Type: RX